FAERS Safety Report 6082162-6 (Version None)
Quarter: 2009Q1

REPORT INFORMATION
  Report Type: 
  Country: None (occurrence: None)
  Receive Date: 20090218
  Receipt Date: 20090212
  Transmission Date: 20090719
  Serious: Yes (Other)
  Sender: FDA-Public Use
  Company Number: A0741358A

PATIENT
  Age: 78 Year
  Sex: Female

DRUGS (22)
  1. ADVAIR DISKUS 100/50 [Suspect]
     Indication: BRONCHIECTASIS
     Route: 055
     Dates: start: 20060301
  2. RYTHMOL SR [Suspect]
     Indication: ARRHYTHMIA
     Dosage: 225MG PER DAY
     Route: 048
     Dates: start: 20050501
  3. WARFARIN SODIUM [Concomitant]
  4. LISINOPRIL [Concomitant]
  5. DILTIAZEM XR [Concomitant]
  6. ALPRAZOLAM [Concomitant]
  7. LASIX [Concomitant]
  8. FLUTICASONE PROPIONATE [Concomitant]
  9. PATANOL [Concomitant]
  10. SINGULAIR [Concomitant]
  11. UNKNOWN MEDICATION [Concomitant]
  12. ACETAMINOPHEN W/ CODEINE TAB [Concomitant]
  13. REFRESH [Concomitant]
  14. TUMS [Concomitant]
  15. MYLANTA [Concomitant]
  16. PEPCID [Concomitant]
  17. MUCINEX [Concomitant]
  18. ASCORBIC ACID [Concomitant]
  19. BIOTIN [Concomitant]
  20. M.V.I. [Concomitant]
  21. DILTIAZEM [Concomitant]
  22. ALBUTEROL [Concomitant]

REACTIONS (7)
  - ASTHMA [None]
  - BRONCHIECTASIS [None]
  - CONSTIPATION [None]
  - DYSPHONIA [None]
  - FATIGUE [None]
  - NAUSEA [None]
  - PRODUCTIVE COUGH [None]
